FAERS Safety Report 13035259 (Version 1)
Quarter: 2016Q4

REPORT INFORMATION
  Report Type: Spontaneous
  Country: US (occurrence: US)
  Receive Date: 20161215
  Receipt Date: 20161215
  Transmission Date: 20170207
  Serious: Yes (Hospitalization)
  Sender: FDA-Public Use
  Company Number: None

PATIENT
  Age: 70 Year
  Sex: Male
  Weight: 67 kg

DRUGS (2)
  1. ABERATERONE [Suspect]
     Active Substance: ABIRATERONE
     Indication: PROSTATE CANCER
     Dates: start: 20140520
  2. DASATINIB [Suspect]
     Active Substance: DASATINIB
     Indication: PROSTATE CANCER
     Dates: start: 20140520

REACTIONS (1)
  - Muscular weakness [None]

NARRATIVE: CASE EVENT DATE: 2016
